FAERS Safety Report 21577309 (Version 1)
Quarter: 2022Q4

REPORT INFORMATION
  Report Type: Spontaneous
  Country: FR (occurrence: FR)
  Receive Date: 20221110
  Receipt Date: 20221110
  Transmission Date: 20230112
  Serious: Yes (Hospitalization)
  Sender: FDA-Public Use
  Company Number: FR-MYLANLABS-2022M1123741

PATIENT
  Age: 55 Year
  Sex: Male

DRUGS (8)
  1. PREGABALIN [Suspect]
     Active Substance: PREGABALIN
     Indication: Neuralgia
     Dosage: UNK (UP TO 200MG), BID
     Route: 065
     Dates: end: 202001
  2. OXYCODONE [Suspect]
     Active Substance: OXYCODONE
     Indication: Neuralgia
     Dosage: UNK
     Route: 065
     Dates: start: 202001
  3. HYDROMORPHONE [Suspect]
     Active Substance: HYDROMORPHONE
     Indication: Neuralgia
     Dosage: 40 MILLIGRAM, BID
     Route: 048
     Dates: start: 202003
  4. MORPHINE [Suspect]
     Active Substance: MORPHINE
     Indication: Neuralgia
     Dosage: UNK
     Route: 048
     Dates: start: 201909
  5. MORPHINE [Suspect]
     Active Substance: MORPHINE
     Dosage: 240 MILLIGRAM, BID
     Route: 048
     Dates: end: 202001
  6. MORPHINE [Suspect]
     Active Substance: MORPHINE
     Dosage: UNK
     Route: 048
     Dates: start: 2020
  7. MORPHINE [Suspect]
     Active Substance: MORPHINE
     Dosage: DOSE TITRATED (10MG/DOSE)
     Route: 048
  8. MORPHINE [Suspect]
     Active Substance: MORPHINE
     Indication: Neuralgia
     Dosage: MORPHINE EQUIVALENT DAILY DOSE OF 480MG
     Route: 042
     Dates: start: 2020

REACTIONS (1)
  - Treatment failure [Unknown]

NARRATIVE: CASE EVENT DATE: 20200101
